FAERS Safety Report 6045607-3 (Version None)
Quarter: 2009Q1

REPORT INFORMATION
  Report Type: 
  Country: None (occurrence: None)
  Receive Date: 20090121
  Receipt Date: 20090115
  Transmission Date: 20090719
  Serious: Yes (Hospitalization)
  Sender: FDA-Public Use
  Company Number: JP-ROCHE-531234

PATIENT
  Age: 50 Year
  Sex: Male

DRUGS (12)
  1. GANCICLOVIR SODIUM [Suspect]
     Dosage: ROUTE REPORTED AS: INTRAVENOUS DRIP.
     Route: 050
     Dates: start: 20060222, end: 20060316
  2. GANCICLOVIR SODIUM [Suspect]
     Dosage: ROUTE REPORTED AS: INTRAVENOUS DRIP.
     Route: 050
     Dates: start: 20060317, end: 20060322
  3. GANCICLOVIR SODIUM [Suspect]
     Dosage: ROUTE: INTRAOCULAR
     Route: 050
     Dates: start: 20060524, end: 20060712
  4. VALGANCICLOVIR HCL [Suspect]
     Route: 048
     Dates: start: 20060323, end: 20060327
  5. PENTAMIDINE ISETHIONATE [Suspect]
     Indication: ANTIFUNGAL PROPHYLAXIS
     Dosage: ROUTE REPORTED AS: RESPIRATORY INHALATION.
     Route: 055
     Dates: start: 20060510, end: 20060822
  6. PENTAMIDINE ISETHIONATE [Suspect]
     Dosage: ROUTE REPORTED AS: RESPIRATORY INHALATION.
     Route: 055
     Dates: start: 20060823
  7. EPIVIR [Suspect]
     Indication: HIV INFECTION
     Route: 048
     Dates: start: 20060522
  8. ZITHROMAX [Concomitant]
     Route: 048
     Dates: start: 20060302, end: 20060608
  9. ZITHROMAX [Concomitant]
     Route: 048
     Dates: start: 20060609
  10. FOSCAVIR [Concomitant]
     Route: 041
     Dates: start: 20060418, end: 20060517
  11. ZERIT [Concomitant]
     Route: 048
     Dates: start: 20060522
  12. STOCRIN [Concomitant]
     Route: 048
     Dates: start: 20060522

REACTIONS (2)
  - BONE MARROW FAILURE [None]
  - MYCOBACTERIUM AVIUM COMPLEX IMMUNE RESTORATION DISEASE [None]
